FAERS Safety Report 7673477-6 (Version None)
Quarter: 2011Q3

REPORT INFORMATION
  Report Type: 
  Country: None (occurrence: None)
  Receive Date: 20110810
  Receipt Date: 20110726
  Transmission Date: 20111222
  Serious: Yes (Hospitalization)
  Sender: FDA-Public Use
  Company Number: AU-RANBAXY-2011RR-46580

PATIENT
  Age: 49 Year
  Sex: Male

DRUGS (3)
  1. OLANZAPINE [Suspect]
     Indication: PRODUCT USED FOR UNKNOWN INDICATION
     Dosage: 2.5 G, UNK
     Route: 065
  2. VENLAFAXINE [Suspect]
     Indication: PRODUCT USED FOR UNKNOWN INDICATION
     Dosage: 4.2 G, UNK
     Route: 065
  3. VALACYCLOVIR [Suspect]
     Indication: PRODUCT USED FOR UNKNOWN INDICATION
     Dosage: 30 G, UNK
     Route: 065

REACTIONS (3)
  - CRYSTALLURIA [None]
  - RENAL FAILURE ACUTE [None]
  - OVERDOSE [None]
